FAERS Safety Report 24457075 (Version 1)
Quarter: 2024Q4

REPORT INFORMATION
  Report Type: Spontaneous
  Country: KR (occurrence: KR)
  Receive Date: 20241018
  Receipt Date: 20241018
  Transmission Date: 20250115
  Serious: Yes (Hospitalization, Other)
  Sender: AMNEAL
  Company Number: KR-AMNEAL PHARMACEUTICALS-2024-AMRX-03768

PATIENT
  Age: 55 Year
  Sex: Female

DRUGS (1)
  1. ACYCLOVIR [Suspect]
     Active Substance: ACYCLOVIR
     Indication: Herpes zoster
     Dosage: 5 MILLIGRAM/KILOGRAM, 1 /DAY (FIVE DAYS)
     Route: 042

REACTIONS (1)
  - Neurotoxicity [Recovered/Resolved]
